FAERS Safety Report 10175516 (Version 1)
Quarter: 2014Q2

REPORT INFORMATION
  Report Type: Spontaneous
  Country: FR (occurrence: FR)
  Receive Date: 20140516
  Receipt Date: 20140516
  Transmission Date: 20141212
  Serious: Yes (Other)
  Sender: FDA-Public Use
  Company Number: FR-ROCHE-1400618

PATIENT
  Age: 8 Year
  Sex: Female
  Weight: 25.8 kg

DRUGS (4)
  1. MABTHERA [Suspect]
     Indication: DERMATOMYOSITIS
     Route: 041
     Dates: start: 20140418
  2. MABTHERA [Suspect]
     Route: 042
     Dates: start: 20140428
  3. POLARAMINE [Concomitant]
  4. SOLU-MEDROL [Concomitant]

REACTIONS (6)
  - Oral pruritus [Recovered/Resolved]
  - Tachypnoea [Recovered/Resolved]
  - Hypoxia [Recovered/Resolved]
  - Tachycardia [Recovered/Resolved]
  - Dyspnoea [Recovered/Resolved]
  - Rash [Recovered/Resolved]
